FAERS Safety Report 6833998-2 (Version None)
Quarter: 2010Q3

REPORT INFORMATION
  Report Type: 
  Country: None (occurrence: None)
  Receive Date: 20100712
  Receipt Date: 20100625
  Transmission Date: 20110219
  Serious: Yes (Life-Threatening, Hospitalization)
  Sender: FDA-Public Use
  Company Number: IT-GENENTECH-304042

PATIENT
  Sex: Male

DRUGS (7)
  1. MABTHERA [Suspect]
     Indication: NON-HODGKIN'S LYMPHOMA
     Dosage: 725.8 MG, UNK
     Route: 042
     Dates: start: 20100531, end: 20100531
  2. DELTACORTENE [Concomitant]
     Indication: CHEMOTHERAPY
     Dosage: 37.5 MG, UNK
     Route: 048
     Dates: start: 20100521, end: 20100606
  3. METFORAL [Concomitant]
     Indication: TYPE 2 DIABETES MELLITUS
     Dosage: 2550 MG, UNK
     Route: 048
     Dates: start: 20060918, end: 20100608
  4. ZYPREXA [Concomitant]
     Indication: BIPOLAR I DISORDER
     Dosage: 10 MG, UNK
     Route: 048
     Dates: start: 20070711, end: 20100608
  5. CYMBALTA [Concomitant]
     Indication: BIPOLAR I DISORDER
     Dosage: 60 MG, UNK
     Route: 048
     Dates: start: 20070711, end: 20100608
  6. LORAZEPAM [Concomitant]
     Indication: ANXIETY
     Dosage: 3.5 MG, UNK
     Route: 048
     Dates: start: 20070711, end: 20100608
  7. VALDORM [Concomitant]
     Indication: INSOMNIA
     Dosage: 30 MG, UNK
     Route: 048
     Dates: start: 20080222, end: 20100608

REACTIONS (4)
  - ACUTE PULMONARY OEDEMA [None]
  - ANAPHYLACTIC SHOCK [None]
  - DROP ATTACKS [None]
  - FACE INJURY [None]
